FAERS Safety Report 18465132 (Version 2)
Quarter: 2020Q4

REPORT INFORMATION
  Report Type: Report from Study
  Country: US (occurrence: US)
  Receive Date: 20201104
  Receipt Date: 20201106
  Transmission Date: 20210114
  Serious: Yes (Life-Threatening, Hospitalization, Other)
  Sender: FDA-Public Use
  Company Number: US-OTSUKA-2020_005672

PATIENT
  Sex: Female

DRUGS (1)
  1. TOLVAPTAN [Suspect]
     Active Substance: TOLVAPTAN
     Indication: CONGENITAL CYSTIC KIDNEY DISEASE
     Dosage: UNK
     Route: 048
     Dates: start: 20200129

REACTIONS (4)
  - Polyuria [Unknown]
  - Cardiac arrest [Recovering/Resolving]
  - Blood pressure decreased [Unknown]
  - Nocturia [Unknown]

NARRATIVE: CASE EVENT DATE: 20200225
